FAERS Safety Report 7374748-3 (Version None)
Quarter: 2011Q1

REPORT INFORMATION
  Report Type: 
  Country: None (occurrence: None)
  Receive Date: 20110325
  Receipt Date: 20101004
  Transmission Date: 20110831
  Serious: Yes (Other)
  Sender: FDA-Public Use
  Company Number: US-MYLANLABS-2010S1018467

PATIENT
  Age: 64 Year
  Sex: Female

DRUGS (6)
  1. FENTANYL-100 [Suspect]
     Indication: BACK PAIN
     Route: 062
     Dates: start: 20100301, end: 20100301
  2. OXYCODONE [Suspect]
     Indication: BACK PAIN
     Route: 048
     Dates: start: 20100201, end: 20100901
  3. OXYCODONE AND ACETAMINOPHEN [Suspect]
     Indication: BACK PAIN
     Route: 048
     Dates: start: 20100201, end: 20100901
  4. NIFEDIPINE [Concomitant]
     Indication: BLOOD PRESSURE INCREASED
     Route: 048
  5. ATENOLOL [Concomitant]
     Indication: BLOOD PRESSURE INCREASED
     Route: 048
  6. NEXIUM [Concomitant]
     Route: 048

REACTIONS (1)
  - DYSPNOEA [None]
